FAERS Safety Report 24575790 (Version 1)
Quarter: 2024Q4

REPORT INFORMATION
  Report Type: Spontaneous
  Country: US (occurrence: None)
  Receive Date: 20241101
  Receipt Date: 20241101
  Transmission Date: 20250115
  Serious: Yes (Life-Threatening)
  Sender: Public
  Company Number: None

PATIENT
  Age: 42 Year
  Sex: Male
  Weight: 93 kg

DRUGS (1)
  1. PHENOBARBITAL SODIUM [Suspect]
     Active Substance: PHENOBARBITAL SODIUM
     Indication: Alcohol withdrawal syndrome
     Dates: start: 20240613, end: 20240613

REACTIONS (3)
  - Hypertension [None]
  - Anaphylactic reaction [None]
  - Tachycardia [None]

NARRATIVE: CASE EVENT DATE: 20240613
